FAERS Safety Report 5853636-5 (Version None)
Quarter: 2008Q3

REPORT INFORMATION
  Report Type: 
  Country: None (occurrence: None)
  Receive Date: 20080822
  Receipt Date: 20080812
  Transmission Date: 20090109
  Serious: Yes (Hospitalization, Other)
  Sender: FDA-Public Use
  Company Number: JP-NOVOPROD-277637

PATIENT
  Age: 71 Year
  Sex: Female
  Weight: 48 kg

DRUGS (8)
  1. LEVEMIR [Suspect]
     Indication: INSULIN-REQUIRING TYPE 2 DIABETES MELLITUS
     Dosage: 4 IU, QD
     Route: 058
     Dates: start: 20080711, end: 20080714
  2. NOVORAPID CHU [Concomitant]
     Indication: INSULIN-REQUIRING TYPE 2 DIABETES MELLITUS
     Dates: start: 20070914
  3. POLITOSE [Concomitant]
     Indication: PANCREATIC DISORDER
     Dates: start: 20070914
  4. SELBEX [Concomitant]
     Indication: GASTRITIS
     Dates: start: 20070914
  5. EVISTA [Concomitant]
     Indication: OSTEOPOROSIS
     Dates: start: 20080116
  6. RABEPRAZOLE SODIUM [Concomitant]
     Indication: REFLUX OESOPHAGITIS
     Dates: start: 20080116
  7. KINEDAK [Concomitant]
     Indication: DIABETIC NEUROPATHY
     Dates: start: 20070914
  8. DIOVAN                             /01319601/ [Concomitant]
     Indication: HYPERTENSION
     Dates: start: 20070914

REACTIONS (1)
  - DRUG HYPERSENSITIVITY [None]
